FAERS Safety Report 6064693-8 (Version None)
Quarter: 2009Q1

REPORT INFORMATION
  Report Type: 
  Country: None (occurrence: None)
  Receive Date: 20090204
  Receipt Date: 20081002
  Transmission Date: 20090719
  Serious: Yes (Hospitalization)
  Sender: FDA-Public Use
  Company Number: A0732228A

PATIENT
  Age: 80 Year
  Sex: Male
  Weight: 116 kg

DRUGS (1)
  1. ARIXTRA [Suspect]
     Indication: DRUG USE FOR UNKNOWN INDICATION
     Dosage: 7.5MG PER DAY
     Route: 058

REACTIONS (2)
  - ANKLE OPERATION [None]
  - HAEMORRHAGE [None]
